FAERS Safety Report 10221224 (Version 1)
Quarter: 2014Q2

REPORT INFORMATION
  Report Type: Spontaneous
  Country: US (occurrence: None)
  Receive Date: 20140604
  Receipt Date: 20140604
  Transmission Date: 20141212
  Serious: Yes (Other)
  Sender: FDA-Public Use
  Company Number: CC14-0549

PATIENT
  Age: 42 Year
  Sex: Female

DRUGS (1)
  1. METRONIDAZOLE [Suspect]
     Indication: ROSACEA

REACTIONS (2)
  - Hypersensitivity [None]
  - Seborrhoeic dermatitis [None]
